FAERS Safety Report 7058636-8 (Version None)
Quarter: 2010Q4

REPORT INFORMATION
  Report Type: 
  Country: None (occurrence: None)
  Receive Date: 20101022
  Receipt Date: 20101013
  Transmission Date: 20110411
  Serious: Yes (Other)
  Sender: FDA-Public Use
  Company Number: B0680495A

PATIENT
  Age: 27 Year
  Sex: Female
  Weight: 60 kg

DRUGS (1)
  1. ZYBAN [Suspect]
     Route: 065
     Dates: start: 20101006, end: 20101012

REACTIONS (4)
  - DRY MOUTH [None]
  - HALLUCINATION [None]
  - MALAISE [None]
  - RESTLESSNESS [None]
